FAERS Safety Report 20901448 (Version 1)
Quarter: 2022Q2

REPORT INFORMATION
  Report Type: Report from Study
  Country: US (occurrence: US)
  Receive Date: 20220601
  Receipt Date: 20220601
  Transmission Date: 20220720
  Serious: Yes (Other)
  Sender: FDA-Public Use
  Company Number: US-BRISTOL-MYERS SQUIBB COMPANY-2022-023020

PATIENT
  Age: 77 Year
  Sex: Female
  Weight: 80.739 kg

DRUGS (2)
  1. POMALYST [Suspect]
     Active Substance: POMALIDOMIDE
     Indication: Plasma cell myeloma
     Dosage: 21 OUT OF 28 DAYS
     Route: 048
     Dates: start: 2018
  2. ATENOLOL [Concomitant]
     Active Substance: ATENOLOL
     Indication: Product used for unknown indication
     Route: 065

REACTIONS (8)
  - Alopecia [Unknown]
  - Fatigue [Unknown]
  - Mass [Unknown]
  - Neuropathy peripheral [Unknown]
  - Tremor [Unknown]
  - Dysphonia [Unknown]
  - Abdominal distension [Unknown]
  - Blepharospasm [Unknown]
